FAERS Safety Report 20083327 (Version 2)
Quarter: 2021Q4

REPORT INFORMATION
  Report Type: Spontaneous
  Country: DE (occurrence: DE)
  Receive Date: 20211117
  Receipt Date: 20211122
  Transmission Date: 20220303
  Serious: Yes (Hospitalization)
  Sender: FDA-Public Use
  Company Number: DE-ADRED-07038-02

PATIENT
  Age: 65 Year
  Sex: Male

DRUGS (11)
  1. FENTANYL [Suspect]
     Active Substance: FENTANYL
     Indication: Product used for unknown indication
     Dosage: 100 MICROGRAM (100 ?G, SCHEMA)
  2. FENTANYL [Suspect]
     Active Substance: FENTANYL
     Dosage: UNK (BEDARF)
  3. POLYETHYLENE GLYCOL 3350\POTASSIUM CHLORIDE\SODIUM BICARBONATE\SODIUM [Concomitant]
     Active Substance: POLYETHYLENE GLYCOL 3350\POTASSIUM CHLORIDE\SODIUM BICARBONATE\SODIUM CHLORIDE
     Dosage: UNK (BEDARF)
  4. ASPIRIN [Concomitant]
     Active Substance: ASPIRIN
     Dosage: 100 MILLIGRAM, QD (100 MG, 1-0-0-0)
  5. PREGABALIN [Concomitant]
     Active Substance: PREGABALIN
     Dosage: UNK (20 MG/ML, 2.5-2.5-2.5-0)
  6. EDOXABAN [Concomitant]
     Active Substance: EDOXABAN
     Dosage: 30 MILLIGRAM, QD (30 MG, 1-0-0-0)
  7. LEVOTHYROXINE SODIUM [Concomitant]
     Active Substance: LEVOTHYROXINE SODIUM
     Dosage: 75 MICROGRAM, QD (75 ?G, 1-0-0-0)
  8. POTASSIUM CITRATE [Concomitant]
     Active Substance: POTASSIUM CITRATE
     Dosage: 20 MILLIMOLE, BID (20 MMOL, 1-0-1-0)
  9. BISOPROLOL [Concomitant]
     Active Substance: BISOPROLOL
     Dosage: 2.5 MILLIGRAM, QD (2.5 MG, 1-0-0-0)
  10. METAMIZOL                          /06276701/ [Concomitant]
     Dosage: 30 GTT DROPS, QID (30 GTT, 1-1-1-1)
  11. MIRTAZAPINE [Concomitant]
     Active Substance: MIRTAZAPINE
     Dosage: 7.5 MILLIGRAM, QD (7.5 MG, 0-0-0-1)

REACTIONS (11)
  - Systemic infection [Unknown]
  - Tracheal pain [Unknown]
  - Condition aggravated [Unknown]
  - Respiratory tract haemorrhage [Unknown]
  - Skin irritation [Unknown]
  - Anaemia [Unknown]
  - Electrocardiogram abnormal [Unknown]
  - Dehydration [Unknown]
  - Atrial fibrillation [Unknown]
  - Abdominal pain [Unknown]
  - Tachycardia [Unknown]
